FAERS Safety Report 9255622 (Version 2)
Quarter: 2013Q3

REPORT INFORMATION
  Report Type: Spontaneous
  Country: FR (occurrence: FR)
  Receive Date: 20130425
  Receipt Date: 20130927
  Transmission Date: 20140515
  Serious: Yes (Hospitalization)
  Sender: FDA-Public Use
  Company Number: FR-GLAXOSMITHKLINE-B0884930A

PATIENT
  Age: 46 Year
  Sex: Female

DRUGS (6)
  1. ZELITREX [Suspect]
     Indication: PRODUCT USED FOR UNKNOWN INDICATION
     Dosage: 500MG TWICE PER DAY
     Route: 048
     Dates: start: 20121124, end: 20121203
  2. TEGRETOL [Suspect]
     Indication: BIPOLAR I DISORDER
     Dosage: 200MG PER DAY
     Route: 048
     Dates: start: 20121205, end: 20121217
  3. ZOMIG [Concomitant]
  4. RIVOTRIL [Concomitant]
  5. ABILIFY [Concomitant]
     Indication: BIPOLAR I DISORDER
     Dates: start: 20121124, end: 20121205
  6. DIFFU-K [Concomitant]

REACTIONS (6)
  - Dermatitis exfoliative [Recovered/Resolved]
  - Pyrexia [Recovered/Resolved]
  - Skin exfoliation [Recovered/Resolved]
  - Oedema peripheral [Recovered/Resolved]
  - Face oedema [Recovered/Resolved]
  - Pseudolymphoma [Recovered/Resolved]
